FAERS Safety Report 16903642 (Version 1)
Quarter: 2019Q4

REPORT INFORMATION
  Report Type: Spontaneous
  Country: US (occurrence: US)
  Receive Date: 20191010
  Receipt Date: 20191010
  Transmission Date: 20200122
  Serious: No
  Sender: FDA-Public Use
  Company Number: US-PFIZER INC-2019434951

PATIENT
  Age: 56 Year
  Sex: Male

DRUGS (2)
  1. ALDACTONE [Suspect]
     Active Substance: SPIRONOLACTONE
     Dosage: UNK
     Dates: start: 2019
  2. EPLERENONE. [Suspect]
     Active Substance: EPLERENONE
     Dosage: UNK

REACTIONS (2)
  - Contraindicated product administered [Unknown]
  - Breast pain [Recovering/Resolving]
